FAERS Safety Report 6246679-3 (Version None)
Quarter: 2009Q2

REPORT INFORMATION
  Report Type: 
  Country: None (occurrence: None)
  Receive Date: 20090624
  Receipt Date: 20090624
  Transmission Date: 20091009
  Serious: No
  Sender: FDA-Public Use
  Company Number: None

PATIENT
  Sex: Female
  Weight: 74.8435 kg

DRUGS (1)
  1. ALENDRONATE SODIUM [Suspect]
     Indication: RESORPTION BONE INCREASED
     Dosage: 70 MG - 1 PILL WEEKLY PO
     Route: 048
     Dates: start: 20090202, end: 20090614

REACTIONS (2)
  - ARTHRITIS [None]
  - CONDITION AGGRAVATED [None]
